FAERS Safety Report 4847460-X (Version None)
Quarter: 2005Q4

REPORT INFORMATION
  Report Type: 
  Country: None (occurrence: None)
  Receive Date: 20051205
  Receipt Date: 20051115
  Transmission Date: 20060501
  Serious: Yes (Hospitalization)
  Sender: FDA-Public Use
  Company Number: 2005AP000951

PATIENT
  Age: 79 Year
  Sex: Female

DRUGS (3)
  1. APO-OMEPRAZOLE             (OMEPRAZOLE) [Suspect]
     Indication: GASTROOESOPHAGEAL REFLUX DISEASE
     Dosage: CAP;PO
     Route: 048
  2. BUDENOSIDE                  (BUDENOSIDE) [Concomitant]
  3. FORMOTEROL FUMARATE                      (FORMOTEROL FUMARATE) [Concomitant]

REACTIONS (6)
  - CHOKING [None]
  - DRUG INEFFECTIVE [None]
  - DYSPNOEA [None]
  - INCREASED UPPER AIRWAY SECRETION [None]
  - RETCHING [None]
  - THERAPEUTIC RESPONSE UNEXPECTED WITH DRUG SUBSTITUTION [None]
